FAERS Safety Report 6220751-6 (Version None)
Quarter: 2009Q2

REPORT INFORMATION
  Report Type: 
  Country: None (occurrence: None)
  Receive Date: 20090610
  Receipt Date: 20090528
  Transmission Date: 20091009
  Serious: Yes (Other)
  Sender: FDA-Public Use
  Company Number: FR-CELGENEUS-056-20484-09060340

PATIENT
  Sex: Female

DRUGS (4)
  1. INNOHEP [Suspect]
     Indication: DEEP VEIN THROMBOSIS
     Route: 058
     Dates: start: 20030310
  2. INNOHEP [Suspect]
     Indication: PULMONARY EMBOLISM
  3. ENOXAPARIN SODIUM [Concomitant]
     Route: 065
  4. HEPARIN [Concomitant]
     Route: 065

REACTIONS (2)
  - DRUG EXPOSURE DURING PREGNANCY [None]
  - THREATENED LABOUR [None]
